FAERS Safety Report 8859951 (Version 1)
Quarter: 2012Q4

REPORT INFORMATION
  Report Type: 
  Country: US (occurrence: US)
  Receive Date: 20121025
  Receipt Date: 20121025
  Transmission Date: 20130627
  Serious: Yes (Other)
  Sender: FDA-Public Use
  Company Number: US-PFIZER INC-2012265525

PATIENT
  Age: 73 Year
  Sex: Male
  Weight: 80.27 kg

DRUGS (4)
  1. LIPITOR [Suspect]
     Indication: CARDIAC DISORDER
     Dosage: 80 mg, daily
     Dates: start: 1984
  2. NORVASC [Suspect]
     Indication: BLOOD PRESSURE ABNORMAL
     Dosage: 10 mg, daily
  3. VIAGRA [Suspect]
     Indication: ERECTILE DYSFUNCTION
     Dosage: 100 mg, as needed
  4. HUMULIN R [Concomitant]
     Indication: DIABETES MELLITUS
     Dosage: 20 IU, 3x/day

REACTIONS (3)
  - Hepatic cancer [Not Recovered/Not Resolved]
  - Colon cancer stage IV [Not Recovered/Not Resolved]
  - Pain [Unknown]
